FAERS Safety Report 26179441 (Version 1)
Quarter: 2025Q4

REPORT INFORMATION
  Report Type: Spontaneous
  Country: GB (occurrence: GB)
  Receive Date: 20251219
  Receipt Date: 20251219
  Transmission Date: 20260117
  Serious: Yes (Death, Life-Threatening, Other)
  Sender: SK LIFE SCIENCE
  Company Number: GB-SK LIFE SCIENCE, INC-SKPVG-2025-002621

PATIENT

DRUGS (2)
  1. XCOPRI [Suspect]
     Active Substance: CENOBAMATE
     Indication: Partial seizures
     Dosage: 8400 MILLIGRAM
     Route: 065
  2. XCOPRI [Suspect]
     Active Substance: CENOBAMATE
     Indication: Epilepsy

REACTIONS (8)
  - Death [Fatal]
  - Aspiration [Unknown]
  - Coma [Unknown]
  - Hypothermia [Unknown]
  - Bradycardia [Unknown]
  - Hypotension [Unknown]
  - Metabolic acidosis [Unknown]
  - Overdose [Unknown]
